FAERS Safety Report 20535571 (Version 1)
Quarter: 2022Q1

REPORT INFORMATION
  Report Type: Spontaneous
  Country: US (occurrence: US)
  Receive Date: 20220302
  Receipt Date: 20220302
  Transmission Date: 20220423
  Serious: Yes (Other)
  Sender: FDA-Public Use
  Company Number: US-LUPIN PHARMACEUTICALS INC.-2022-02535

PATIENT
  Age: 7 Decade
  Sex: Female

DRUGS (6)
  1. CINACALCET [Interacting]
     Active Substance: CINACALCET
     Indication: Blood calcium increased
     Dosage: 30 MG, THREE TIMES IN A WEEK
     Route: 048
  2. CINACALCET [Interacting]
     Active Substance: CINACALCET
     Dosage: 30 MG, QD
     Route: 048
  3. CLOZAPINE [Interacting]
     Active Substance: CLOZAPINE
     Indication: Schizophrenia
     Dosage: 150 MG IN THE MORNING AND 250 MG AT BEDTIME
     Route: 065
  4. CLOZAPINE [Interacting]
     Active Substance: CLOZAPINE
     Dosage: DECREASE IN MORNING DOSE OF 150MG
     Route: 065
  5. RISPERIDONE [Concomitant]
     Active Substance: RISPERIDONE
     Indication: Schizophrenia
     Dosage: UNK
     Route: 065
  6. HALOPERIDOL [Concomitant]
     Active Substance: HALOPERIDOL
     Indication: Schizophrenia
     Dosage: UNK
     Route: 065

REACTIONS (2)
  - Torticollis [Recovered/Resolved]
  - Drug interaction [Unknown]
